FAERS Safety Report 19641289 (Version 1)
Quarter: 2021Q3

REPORT INFORMATION
  Report Type: Report from Study
  Country: US (occurrence: US)
  Receive Date: 20210730
  Receipt Date: 20210730
  Transmission Date: 20211014
  Serious: Yes (Other)
  Sender: FDA-Public Use
  Company Number: US-TEVA-2021-US-1936116

PATIENT
  Age: 57 Year
  Sex: Female

DRUGS (3)
  1. COPAXONE [Suspect]
     Active Substance: GLATIRAMER ACETATE
     Route: 058
  2. COPAXONE [Suspect]
     Active Substance: GLATIRAMER ACETATE
  3. AUTOJECT (DEVICE) [Suspect]
     Active Substance: DEVICE
     Route: 065

REACTIONS (12)
  - Eye movement disorder [Recovered/Resolved]
  - Flushing [Recovered/Resolved]
  - Glassy eyes [Recovered/Resolved]
  - Swelling face [Unknown]
  - Loss of consciousness [Recovered/Resolved]
  - Dyspnoea [Recovered/Resolved]
  - Urinary incontinence [Recovered/Resolved]
  - Lip swelling [Unknown]
  - Chills [Unknown]
  - Device delivery system issue [Unknown]
  - Immediate post-injection reaction [Unknown]
  - Gait disturbance [Recovered/Resolved]

NARRATIVE: CASE EVENT DATE: 20210719
